FAERS Safety Report 13210313 (Version 1)
Quarter: 2017Q1

REPORT INFORMATION
  Report Type: Spontaneous
  Country: US (occurrence: US)
  Receive Date: 20170209
  Receipt Date: 20170209
  Transmission Date: 20170428
  Serious: No
  Sender: FDA-Public Use
  Company Number: None

PATIENT
  Age: 37 Year
  Sex: Female

DRUGS (1)
  1. CYCLOSPORINE CAP MOD 100MG [Suspect]
     Active Substance: CYCLOSPORINE
     Indication: DERMATITIS ATOPIC

REACTIONS (3)
  - Hypersomnia [None]
  - Fatigue [None]
  - Product odour abnormal [None]

NARRATIVE: CASE EVENT DATE: 20170209
